FAERS Safety Report 19139273 (Version 1)
Quarter: 2021Q2

REPORT INFORMATION
  Report Type: Spontaneous
  Country: US (occurrence: US)
  Receive Date: 20210414
  Receipt Date: 20210414
  Transmission Date: 20210717
  Serious: No
  Sender: FDA-Public Use
  Company Number: None

PATIENT
  Age: 61 Year
  Sex: Female

DRUGS (1)
  1. ACTEMRA ACTPEN [Suspect]
     Active Substance: TOCILIZUMAB
     Dosage: ?          OTHER DOSE:PEN;OTHER FREQUENCY:OTHER;?
     Route: 058
     Dates: start: 202103

REACTIONS (2)
  - Fatigue [None]
  - Acne [None]

NARRATIVE: CASE EVENT DATE: 20210414
